FAERS Safety Report 4748824-5 (Version None)
Quarter: 2005Q3

REPORT INFORMATION
  Report Type: 
  Country: None (occurrence: None)
  Receive Date: 20050812
  Receipt Date: 20050711
  Transmission Date: 20060218
  Serious: Yes (Hospitalization)
  Sender: FDA-Public Use
  Company Number: 410589

PATIENT
  Age: 26 Year
  Sex: Female

DRUGS (2)
  1. PEGASYS [Suspect]
     Indication: HEPATITIS C VIRUS
     Dosage: SUBCUTANEOUS
     Route: 058
     Dates: start: 20050408, end: 20050627
  2. COPEGUS [Suspect]
     Indication: HEPATITIS C VIRUS
     Dosage: ORAL
     Route: 048
     Dates: start: 20050408, end: 20050627

REACTIONS (4)
  - ANAEMIA [None]
  - DROOLING [None]
  - REGRESSIVE BEHAVIOUR [None]
  - SOMNOLENCE [None]
